FAERS Safety Report 7146614-X (Version None)
Quarter: 2010Q4

REPORT INFORMATION
  Report Type: 
  Country: None (occurrence: None)
  Receive Date: 20101208
  Receipt Date: 20101130
  Transmission Date: 20110411
  Serious: No
  Sender: FDA-Public Use
  Company Number: US-PFIZER INC-2010160660

PATIENT

DRUGS (1)
  1. PRISTIQ [Suspect]

REACTIONS (1)
  - HYPERHIDROSIS [None]
